FAERS Safety Report 24191022 (Version 2)
Quarter: 2024Q3

REPORT INFORMATION
  Report Type: Spontaneous
  Country: IT (occurrence: IT)
  Receive Date: 20240808
  Receipt Date: 20240911
  Transmission Date: 20241016
  Serious: Yes (Other)
  Sender: MYLAN
  Company Number: IT-CELLTRION INC.-2024IT016289

PATIENT
  Age: 69 Year
  Sex: Male

DRUGS (9)
  1. PREDNISONE [Suspect]
     Active Substance: PREDNISONE
     Indication: Glomerulonephritis membranous
     Dosage: 0.5 MILLIGRAM/KILOGRAM, QD (SINGLE DOSE (B CELL TARGETED THERAPY))
     Route: 065
  2. PREDNISONE [Suspect]
     Active Substance: PREDNISONE
     Indication: Pemphigoid
  3. METHYLPREDNISOLONE [Suspect]
     Active Substance: METHYLPREDNISOLONE
     Indication: Pemphigoid
     Dosage: 1 GRAM, QD  FOR 3 DAYS
     Route: 065
  4. METHYLPREDNISOLONE [Suspect]
     Active Substance: METHYLPREDNISOLONE
     Indication: Glomerulonephritis membranous
  5. MABTHERA [Suspect]
     Active Substance: RITUXIMAB
     Indication: Pemphigoid
     Dosage: 375 MILLIGRAM/SQ. METER, 375 MG/M2; SINGLE DOSE (B-CELL TARGETED THERAPY)
     Route: 065
  6. MABTHERA [Suspect]
     Active Substance: RITUXIMAB
     Indication: Glomerulonephritis membranous
     Dosage: 375 MILLIGRAM/SQ. METER, 375 MG/M2; SECOND RTX INFUSION
     Route: 065
  7. RITUXIMAB [Suspect]
     Active Substance: RITUXIMAB
     Indication: Pemphigoid
     Dosage: 375 MILLIGRAM/SQ. METER, SINGLE DOSE (B-CELL TARGETED THERAPY)
     Route: 065
  8. RITUXIMAB [Suspect]
     Active Substance: RITUXIMAB
     Indication: Glomerulonephritis membranous
     Dosage: 375 MILLIGRAM/SQ. METER, SECOND RTX INFUSION
     Route: 065
  9. LINAGLIPTIN [Concomitant]
     Active Substance: LINAGLIPTIN
     Indication: Diabetes mellitus
     Dosage: UNK
     Route: 065

REACTIONS (4)
  - Cellulitis staphylococcal [Unknown]
  - Therapeutic response unexpected [Unknown]
  - Therapeutic product effective for unapproved indication [Unknown]
  - Intentional product use issue [Unknown]
